FAERS Safety Report 23392445 (Version 4)
Quarter: 2024Q1

REPORT INFORMATION
  Report Type: Spontaneous
  Country: GR (occurrence: GR)
  Receive Date: 20240111
  Receipt Date: 20240321
  Transmission Date: 20240410
  Serious: No
  Sender: FDA-Public Use
  Company Number: GR-PFIZER INC-PV202300205270

PATIENT
  Age: 12 Year
  Sex: Female
  Weight: 31 kg

DRUGS (1)
  1. GENOTROPIN [Suspect]
     Active Substance: SOMATROPIN
     Indication: Body height decreased
     Dosage: 0.8MG X 5 DAYS (MONDAY-FRIDAY) AND 1MG X 2 DAYS (SATURDAY AND SUNDAY) / 7 DAYS
     Route: 058
     Dates: start: 202312

REACTIONS (3)
  - Wrong technique in device usage process [Unknown]
  - Drug dose omission by device [Unknown]
  - Device issue [Unknown]

NARRATIVE: CASE EVENT DATE: 20231217
